FAERS Safety Report 10212988 (Version 2)
Quarter: 2014Q2

REPORT INFORMATION
  Report Type: Spontaneous
  Country: BR (occurrence: BR)
  Receive Date: 20140602
  Receipt Date: 20140602
  Transmission Date: 20141212
  Serious: Yes (Other)
  Sender: FDA-Public Use
  Company Number: PHHY2014BR061977

PATIENT
  Age: 1 Year
  Sex: Female
  Weight: 8.5 kg

DRUGS (1)
  1. AMOXICILLIN SODIUM+POTASSIUM CLAVULANATE [Suspect]
     Indication: EAR INFECTION
     Dosage: 2.5 ML, BID
     Route: 048
     Dates: end: 20140515

REACTIONS (2)
  - Skin discolouration [Recovered/Resolved]
  - Erythema [Recovered/Resolved]
